FAERS Safety Report 9454669 (Version 1)
Quarter: 2013Q3

REPORT INFORMATION
  Report Type: Spontaneous
  Country: US (occurrence: None)
  Receive Date: 20130808
  Receipt Date: 20130808
  Transmission Date: 20140515
  Serious: Yes (Other)
  Sender: FDA-Public Use
  Company Number: PR-AE13-000871

PATIENT
  Sex: Male

DRUGS (3)
  1. BC POWDER (ASPIRIN 845 MG/CAFFEINE 65 MG) [Suspect]
     Indication: ANALGESIC THERAPY
     Route: 048
  2. CODEINE [Concomitant]
  3. XANAX (ALPRAZOLAM) [Concomitant]

REACTIONS (11)
  - Dependence [None]
  - Weight decreased [None]
  - Decreased appetite [None]
  - Dysphagia [None]
  - Throat irritation [None]
  - Dyspepsia [None]
  - Overdose [None]
  - Panic attack [None]
  - Tachycardia [None]
  - Dizziness [None]
  - Visual impairment [None]
